FAERS Safety Report 7159926-0 (Version None)
Quarter: 2010Q4

REPORT INFORMATION
  Report Type: 
  Country: None (occurrence: None)
  Receive Date: 20101214
  Receipt Date: 20101209
  Transmission Date: 20110411
  Serious: Yes (Life-Threatening, Hospitalization)
  Sender: FDA-Public Use
  Company Number: US-ABBOTT-10P-163-0691226-00

PATIENT
  Sex: Male

DRUGS (6)
  1. RITONAVIR [Suspect]
     Indication: HIV INFECTION
     Route: 048
  2. EMTRICITABINE/TENOFOVIR DISOPROXIL FUMARATE [Concomitant]
     Indication: HIV INFECTION
  3. ATAZANAVIR SULFATE [Concomitant]
     Indication: HIV INFECTION
  4. TRAMADOL [Concomitant]
     Indication: PAIN
     Route: 048
     Dates: end: 20101204
  5. TIZANIDINE [Concomitant]
     Indication: MUSCLE RELAXANT THERAPY
     Route: 048
     Dates: end: 20101204
  6. TYLENOL EXTRA STRENGTH [Concomitant]
     Indication: NASOPHARYNGITIS
     Route: 048
     Dates: end: 20101203

REACTIONS (1)
  - CHEST PAIN [None]
